FAERS Safety Report 25467541 (Version 1)
Quarter: 2025Q2

REPORT INFORMATION
  Report Type: Spontaneous
  Country: US (occurrence: None)
  Receive Date: 20250621
  Receipt Date: 20250621
  Transmission Date: 20250717
  Serious: Yes (Disabling, Other)
  Sender: FDA-CTU
  Company Number: None

PATIENT
  Age: 65 Year
  Sex: Female
  Weight: 55.8 kg

DRUGS (5)
  1. ESCITALOPRAM [Suspect]
     Active Substance: ESCITALOPRAM OXALATE
     Indication: Generalised anxiety disorder
     Dosage: OTHER QUANTITY : 1 DROP(S);?FREQUENCY : DAILY;?
     Route: 048
     Dates: start: 20030101, end: 20050101
  2. ESCITALOPRAM [Suspect]
     Active Substance: ESCITALOPRAM OXALATE
     Indication: Persistent depressive disorder
  3. MAGNESIUM [Concomitant]
     Active Substance: MAGNESIUM
  4. QUERCETIN [Concomitant]
     Active Substance: QUERCETIN
  5. VITAMIN C [Concomitant]
     Active Substance: ASCORBIC ACID

REACTIONS (21)
  - Anger [None]
  - Irritability [None]
  - Mania [None]
  - Hypersexuality [None]
  - Amnesia [None]
  - Attention deficit hyperactivity disorder [None]
  - Platelet count decreased [None]
  - Therapy change [None]
  - Weight decreased [None]
  - Eating disorder [None]
  - Alopecia [None]
  - Diarrhoea [None]
  - Gastrointestinal disorder [None]
  - Akathisia [None]
  - Feeling abnormal [None]
  - Chills [None]
  - Nausea [None]
  - Pruritus [None]
  - Dizziness [None]
  - Dizziness [None]
  - Rash [None]

NARRATIVE: CASE EVENT DATE: 20110101
